FAERS Safety Report 10031920 (Version 2)
Quarter: 2014Q1

REPORT INFORMATION
  Report Type: Spontaneous
  Country: FR (occurrence: FR)
  Receive Date: 20140324
  Receipt Date: 20140328
  Transmission Date: 20141002
  Serious: Yes (Hospitalization)
  Sender: FDA-Public Use
  Company Number: FR-UCBSA-114709

PATIENT
  Age: 26 Year
  Sex: Female

DRUGS (10)
  1. CIMZIA [Suspect]
     Indication: RHEUMATOID ARTHRITIS
     Route: 058
     Dates: start: 2013, end: 20140305
  2. IMETH [Concomitant]
     Indication: RHEUMATOID ARTHRITIS
     Dosage: 10 MG SCORED TABLET
     Route: 048
  3. SPECIAFOLDINE [Concomitant]
  4. DOLIPRANE [Concomitant]
  5. ACUPAN [Concomitant]
  6. TOPALGIC [Concomitant]
  7. VALIUM [Concomitant]
  8. BIPROFENID [Concomitant]
  9. NORFLOXACINE [Concomitant]
     Indication: URINARY TRACT INFECTION
  10. INEXIUM [Concomitant]

REACTIONS (1)
  - Psoriasis [Recovered/Resolved]
